FAERS Safety Report 9169615 (Version 1)
Quarter: 2013Q1

REPORT INFORMATION
  Report Type: Spontaneous
  Country: BR (occurrence: BR)
  Receive Date: 20130318
  Receipt Date: 20130318
  Transmission Date: 20140127
  Serious: Yes (Other)
  Sender: FDA-Public Use
  Company Number: BR-PFIZER INC-2011286750

PATIENT
  Age: 14 Year
  Sex: Male

DRUGS (4)
  1. TALIGLUCERASE ALFA [Suspect]
     Indication: GAUCHER^S DISEASE
     Dosage: 60 IU/KG IN 5.8ML
     Route: 042
     Dates: start: 20111122
  2. HYDROCORTISONE [Concomitant]
     Indication: PREMEDICATION
     Dosage: 400 MG, UNK
     Route: 042
  3. LORATADINE [Concomitant]
     Indication: PREMEDICATION
     Dosage: 10 MG, UNK
     Route: 048
  4. RANITIDINE [Concomitant]
     Indication: PREMEDICATION
     Dosage: 150 MG, UNK
     Route: 048

REACTIONS (5)
  - Rash [Recovered/Resolved]
  - Papule [Recovered/Resolved]
  - Vomiting [Recovered/Resolved]
  - Headache [Recovered/Resolved]
  - Abdominal pain upper [Recovering/Resolving]
